FAERS Safety Report 4648418-6 (Version None)
Quarter: 2005Q2

REPORT INFORMATION
  Report Type: 
  Country: None (occurrence: None)
  Receive Date: 20050427
  Receipt Date: 20050418
  Transmission Date: 20051028
  Serious: Yes (Other)
  Sender: FDA-Public Use
  Company Number: HQWYE166320APR05

PATIENT
  Age: 25 Year
  Sex: Male

DRUGS (3)
  1. RAPAMUNE [Suspect]
     Indication: PROPHYLAXIS AGAINST TRANSPLANT REJECTION
     Dosage: 4 MG 1X PER 1 DAY, ORAL; (2 MG OVERDOSE ON UNSPECIFIED DATE)
     Route: 048
     Dates: start: 20031216
  2. PREDNISONE [Concomitant]
  3. AZATHIOPRINE [Concomitant]

REACTIONS (3)
  - ACCIDENTAL OVERDOSE [None]
  - BLOOD CREATINE INCREASED [None]
  - MEDICATION ERROR [None]
